FAERS Safety Report 6068187-5 (Version None)
Quarter: 2009Q1

REPORT INFORMATION
  Report Type: 
  Country: None (occurrence: None)
  Receive Date: 20090206
  Receipt Date: 20080517
  Transmission Date: 20090719
  Serious: Yes (Disabling)
  Sender: FDA-Public Use
  Company Number: AT-AMGEN-UK227815

PATIENT
  Sex: Female

DRUGS (4)
  1. PALIFERMIN [Suspect]
     Indication: MUCOSAL INFLAMMATION
     Route: 042
     Dates: start: 20060505, end: 20060623
  2. DURAGESIC-100 [Concomitant]
     Dates: start: 20060623
  3. VOLTAREN [Concomitant]
     Dates: start: 20060506
  4. RADIATION THERAPY [Concomitant]
     Route: 050

REACTIONS (5)
  - DYSPHAGIA [None]
  - ORAL PAIN [None]
  - OROPHARYNGEAL PAIN [None]
  - PHARYNGEAL FISTULA [None]
  - RADIATION NECROSIS [None]
